FAERS Safety Report 7861095-6 (Version None)
Quarter: 2011Q4

REPORT INFORMATION
  Report Type: 
  Country: None (occurrence: None)
  Receive Date: 20111027
  Receipt Date: 20111013
  Transmission Date: 20120403
  Serious: Yes (Death, Hospitalization)
  Sender: FDA-Public Use
  Company Number: ZA-ROCHE-730150

PATIENT
  Sex: Male
  Weight: 78 kg

DRUGS (8)
  1. FERRIMED (FOLIC ACID/IRON POLYMALTOSE) [Concomitant]
     Indication: VITAMIN SUPPLEMENTATION
     Dates: start: 20100701
  2. MULTIVITAMIN NOS [Concomitant]
     Indication: VITAMIN SUPPLEMENTATION
  3. TEMSIROLIMUS [Suspect]
     Indication: RENAL CELL CARCINOMA
     Route: 042
     Dates: start: 20100714, end: 20100927
  4. PANADO [Concomitant]
     Indication: PAIN
  5. PANADO [Concomitant]
  6. AVASTIN [Suspect]
     Indication: RENAL CELL CARCINOMA
     Route: 042
     Dates: start: 20100714, end: 20100927
  7. VALOID [Concomitant]
     Indication: NAUSEA
  8. ESPIRIDE [Concomitant]
     Indication: DEPRESSION

REACTIONS (3)
  - DEHYDRATION [None]
  - BRONCHOPNEUMONIA [None]
  - VOMITING [None]
